FAERS Safety Report 12431837 (Version 3)
Quarter: 2016Q3

REPORT INFORMATION
  Report Type: Spontaneous
  Country: US (occurrence: US)
  Receive Date: 20160603
  Receipt Date: 20160916
  Transmission Date: 20161109
  Serious: Yes (Other)
  Sender: FDA-Public Use
  Company Number: US-TEVA-662667ACC

PATIENT
  Age: 27 Year
  Sex: Female
  Weight: 48.12 kg

DRUGS (1)
  1. PARAGARD T 380A [Suspect]
     Active Substance: COPPER
     Indication: CONTRACEPTION
     Dates: start: 2013, end: 20160503

REACTIONS (6)
  - Exposure during pregnancy [Unknown]
  - Drug ineffective [Unknown]
  - Menstruation delayed [Not Recovered/Not Resolved]
  - Pregnancy on contraceptive [Unknown]
  - Abortion induced [Unknown]
  - Fatigue [Recovered/Resolved]

NARRATIVE: CASE EVENT DATE: 201603
